FAERS Safety Report 19001147 (Version 1)
Quarter: 2021Q1

REPORT INFORMATION
  Report Type: Other
  Country: DE (occurrence: DE)
  Receive Date: 20210311
  Receipt Date: 20210311
  Transmission Date: 20210420
  Serious: Yes (Hospitalization)
  Sender: FDA-Public Use
  Company Number: DE-CELLTRION INC.-2021DE002929

PATIENT

DRUGS (1)
  1. INFLIXIMAB (UNKNOWN) [Suspect]
     Active Substance: INFLIXIMAB
     Indication: COLITIS ULCERATIVE
     Dosage: 300 MG, EVERY 8 WEEKS, (DAILY DOSE: 300 MG MILLGRAM(S) EVERY 8 WEEKS)
     Route: 042
     Dates: start: 20200825

REACTIONS (2)
  - Myositis [Not Recovered/Not Resolved]
  - Overdose [Unknown]

NARRATIVE: CASE EVENT DATE: 20200910
